FAERS Safety Report 7489507-0 (Version None)
Quarter: 2011Q2

REPORT INFORMATION
  Report Type: 
  Country: None (occurrence: None)
  Receive Date: 20110519
  Receipt Date: 20110509
  Transmission Date: 20111010
  Serious: Yes (Other)
  Sender: FDA-Public Use
  Company Number: FR-BRISTOL-MYERS SQUIBB COMPANY-15739881

PATIENT
  Age: 56 Year
  Sex: Male

DRUGS (3)
  1. CETUXIMAB [Suspect]
     Indication: HEAD AND NECK CANCER
     Dosage: MOST RECENT INF ON 26OCT2009
     Route: 042
     Dates: start: 20090921
  2. CARBOPLATIN [Suspect]
     Indication: HEAD AND NECK CANCER
     Dosage: MOST RECENT INF ON 19OCT2009
     Route: 042
     Dates: start: 20090928
  3. FLUOROURACIL [Suspect]
     Indication: HEAD AND NECK CANCER
     Dosage: MOST RECENT INF ON 19OCT2009
     Route: 042
     Dates: start: 20090928

REACTIONS (2)
  - RADIATION MUCOSITIS [None]
  - RADIATION SKIN INJURY [None]
